FAERS Safety Report 11451965 (Version 2)
Quarter: 2015Q3

REPORT INFORMATION
  Report Type: Spontaneous
  Country: US (occurrence: US)
  Receive Date: 20150903
  Receipt Date: 20150908
  Transmission Date: 20151125
  Serious: No
  Sender: FDA-Public Use
  Company Number: PHEH2015US001332

PATIENT
  Age: 54 Year
  Sex: Female
  Weight: 88.9 kg

DRUGS (2)
  1. VIVELLE DOT [Suspect]
     Active Substance: ESTRADIOL
     Indication: HOT FLUSH
     Dosage: 0.037 MG, (1 PATCH TWICE WEEKLY)
     Route: 062
     Dates: start: 20150101
  2. VIVELLE DOT [Suspect]
     Active Substance: ESTRADIOL
     Indication: SLEEP DISORDER

REACTIONS (4)
  - Vaginal haemorrhage [Not Recovered/Not Resolved]
  - Sleep disorder [Not Recovered/Not Resolved]
  - Drug ineffective [Not Recovered/Not Resolved]
  - Hot flush [Not Recovered/Not Resolved]

NARRATIVE: CASE EVENT DATE: 20150104
